FAERS Safety Report 9924554 (Version 1)
Quarter: 2014Q1

REPORT INFORMATION
  Report Type: Spontaneous
  Country: US (occurrence: None)
  Receive Date: 20140224
  Receipt Date: 20140224
  Transmission Date: 20141002
  Serious: Yes (Other)
  Sender: FDA-Public Use
  Company Number: None

PATIENT
  Age: 20 Year
  Sex: Male

DRUGS (2)
  1. ADDERALL XR [Suspect]
     Dosage: 1
     Route: 048
     Dates: start: 20131115, end: 20140221
  2. FLUOXETINE HYDROCHLORIDE [Suspect]
     Dosage: 1
     Route: 048
     Dates: start: 20140208

REACTIONS (6)
  - Loss of consciousness [None]
  - Pulse abnormal [None]
  - Poor peripheral circulation [None]
  - Cold sweat [None]
  - Feeling abnormal [None]
  - Drug interaction [None]
